FAERS Safety Report 11265283 (Version 1)
Quarter: 2015Q3

REPORT INFORMATION
  Report Type: Spontaneous
  Country: US (occurrence: None)
  Receive Date: 20150710
  Receipt Date: 20150710
  Transmission Date: 20151125
  Serious: Yes (Disabling)
  Sender: FDA-Public Use
  Company Number: None

PATIENT
  Age: 16 Year
  Sex: Female
  Weight: 86.18 kg

DRUGS (2)
  1. TEGRETOL [Concomitant]
     Active Substance: CARBAMAZEPINE
  2. TEGRETOL [Suspect]
     Active Substance: CARBAMAZEPINE
     Dosage: TAKEN BY MOUTH
     Route: 048

REACTIONS (3)
  - Cognitive disorder [None]
  - Learning disorder [None]
  - Memory impairment [None]
